FAERS Safety Report 22304921 (Version 1)
Quarter: 2023Q2

REPORT INFORMATION
  Report Type: Spontaneous
  Country: US (occurrence: US)
  Receive Date: 20230510
  Receipt Date: 20230510
  Transmission Date: 20230722
  Serious: No
  Sender: FDA-Public Use
  Company Number: US-PFIZER INC-202300180145

PATIENT
  Age: 56 Year
  Sex: Female
  Weight: 47.17 kg

DRUGS (3)
  1. CHANTIX [Suspect]
     Active Substance: VARENICLINE TARTRATE
     Indication: Smoking cessation therapy
     Dosage: UNK (FIRST 3 DAYS 0.5MG AND THEN TAKE TWO A DAY)
  2. NICOTINE [Suspect]
     Active Substance: NICOTINE
     Dosage: 14 MG (PATCHES)
  3. VARENICLINE [Suspect]
     Active Substance: VARENICLINE
     Dosage: UNK

REACTIONS (4)
  - Recalled product administered [Unknown]
  - Irritability [Unknown]
  - Anxiety [Unknown]
  - Anger [Unknown]
